FAERS Safety Report 11400196 (Version 1)
Quarter: 2015Q3

REPORT INFORMATION
  Report Type: Spontaneous
  Country: US (occurrence: US)
  Receive Date: 20150820
  Receipt Date: 20150820
  Transmission Date: 20151125
  Serious: No
  Sender: FDA-Public Use
  Company Number: US-ASTELLAS-2015US003811

PATIENT
  Age: 29 Year
  Sex: Female

DRUGS (3)
  1. AMBISOME [Suspect]
     Active Substance: AMPHOTERICIN B
     Indication: NEUTROPENIA
  2. AMBISOME [Suspect]
     Active Substance: AMPHOTERICIN B
     Indication: WHITE BLOOD CELL DISORDER
     Route: 065
     Dates: start: 20150119, end: 20150131
  3. MYCAMINE [Suspect]
     Active Substance: MICAFUNGIN SODIUM
     Indication: OESOPHAGEAL CANDIDIASIS
     Route: 065
     Dates: start: 20150110, end: 20150118

REACTIONS (1)
  - Product use issue [Unknown]

NARRATIVE: CASE EVENT DATE: 20150119
